FAERS Safety Report 8583556-7 (Version None)
Quarter: 2012Q3

REPORT INFORMATION
  Report Type: 
  Country: None (occurrence: None)
  Receive Date: 20120809
  Receipt Date: 20120802
  Transmission Date: 20120928
  Serious: Yes (Hospitalization, Other)
  Sender: FDA-Public Use
  Company Number: US-UCBSA-062785

PATIENT
  Age: 25 Year
  Sex: Female
  Weight: 63.95 kg

DRUGS (1)
  1. CIMZIA [Suspect]
     Indication: CROHN'S DISEASE
     Dosage: STARTER PACK
     Route: 058
     Dates: start: 20120716

REACTIONS (2)
  - HAEMOLYSIS [None]
  - BODY TEMPERATURE INCREASED [None]
